FAERS Safety Report 5444088-8 (Version None)
Quarter: 2007Q3

REPORT INFORMATION
  Report Type: 
  Country: None (occurrence: None)
  Receive Date: 20070831
  Receipt Date: 20070817
  Transmission Date: 20080115
  Serious: Yes (Hospitalization)
  Sender: FDA-Public Use
  Company Number: CLOF-10551

PATIENT
  Age: 8 Year
  Sex: Female
  Weight: 19.5 kg

DRUGS (13)
  1. CLOFARABINE. MFR. GENZYME [Suspect]
     Indication: ACUTE LYMPHOCYTIC LEUKAEMIA
     Dosage: 32 MG QD X 5 IV
     Route: 042
     Dates: start: 20070413, end: 20070417
  2. CLOFARABINE. MFR. GENZYME [Suspect]
     Indication: ACUTE LYMPHOCYTIC LEUKAEMIA
     Dosage: 32 MG QD IV
     Route: 042
     Dates: start: 20070525, end: 20070528
  3. ETOPOSIDE [Suspect]
     Indication: ACUTE LYMPHOCYTIC LEUKAEMIA
     Dosage: 81 MG QD X 5 IV
     Route: 042
     Dates: start: 20070413, end: 20070417
  4. ETOPOSIDE [Suspect]
     Indication: ACUTE LYMPHOCYTIC LEUKAEMIA
     Dosage: 81 MG QD IV
     Route: 042
     Dates: start: 20070525, end: 20070528
  5. CYCLOPHOSPHAMIDE [Suspect]
     Indication: ACUTE LYMPHOCYTIC LEUKAEMIA
     Dosage: 356 MG QD X 5 IV
     Route: 042
     Dates: start: 20070413, end: 20070418
  6. CYCLOPHOSPHAMIDE [Suspect]
     Indication: ACUTE LYMPHOCYTIC LEUKAEMIA
     Dosage: 356 MG QD IV
     Route: 042
     Dates: start: 20070526, end: 20070529
  7. ZOFRAN. MFR: GLAXO LABORATORIES LIMTED [Concomitant]
  8. ATIVAN. MFR: WYETH LABORATORIES, INCORPORATED [Concomitant]
  9. FILGRASTIM [Concomitant]
  10. ACYCLOVIR [Concomitant]
  11. MOXIFLOXACIN HCL [Concomitant]
  12. FLUCONAZOLE [Concomitant]
  13. DAPSONE [Concomitant]

REACTIONS (14)
  - BK VIRUS INFECTION [None]
  - BLADDER DISORDER [None]
  - CRYSTAL URINE PRESENT [None]
  - DRUG RESISTANCE [None]
  - DRUG TOXICITY [None]
  - HEART RATE INCREASED [None]
  - INCONTINENCE [None]
  - NASAL CONGESTION [None]
  - NEUTROPHIL COUNT DECREASED [None]
  - RESTLESSNESS [None]
  - URINARY TRACT INFECTION ENTEROCOCCAL [None]
  - URINARY TRACT INFECTION VIRAL [None]
  - VOMITING [None]
  - WHITE BLOOD CELL COUNT DECREASED [None]
